FAERS Safety Report 10405503 (Version 1)
Quarter: 2014Q3

REPORT INFORMATION
  Report Type: Spontaneous
  Country: US (occurrence: None)
  Receive Date: 20140822
  Receipt Date: 20140822
  Transmission Date: 20150326
  Serious: No
  Sender: FDA-Public Use
  Company Number: None

PATIENT
  Sex: Female
  Weight: 46.72 kg

DRUGS (2)
  1. LEVOTHYROXINE [Suspect]
     Active Substance: LEVOTHYROXINE
     Indication: HYPOTHYROIDISM
     Dates: start: 20070411
  2. LEVOTHYROXINE [Suspect]
     Active Substance: LEVOTHYROXINE
     Dosage: ONE M-SAT, 1/2 SUN?ONE M-F, 1/2 SAT/SUN
     Route: 048
     Dates: start: 20070411, end: 20070608

REACTIONS (6)
  - Constipation [None]
  - Malaise [None]
  - Weight increased [None]
  - Blood thyroid stimulating hormone abnormal [None]
  - Fatigue [None]
  - Alopecia [None]
